FAERS Safety Report 6425057-8 (Version None)
Quarter: 2009Q4

REPORT INFORMATION
  Report Type: 
  Country: None (occurrence: None)
  Receive Date: 20091102
  Receipt Date: 20091102
  Transmission Date: 20100525
  Serious: No
  Sender: FDA-Public Use
  Company Number: None

PATIENT
  Age: 43 Year
  Sex: Female

DRUGS (1)
  1. HYDROXYCHLOROQUINE SULFATE [Suspect]
     Dosage: ONE TABLET TWICE A DAY

REACTIONS (3)
  - DYSPHAGIA [None]
  - NAUSEA [None]
  - PRODUCT COATING ISSUE [None]
